FAERS Safety Report 6269849-7 (Version None)
Quarter: 2009Q3

REPORT INFORMATION
  Report Type: 
  Country: None (occurrence: None)
  Receive Date: 20090714
  Receipt Date: 20090702
  Transmission Date: 20100115
  Serious: Yes (Death, Hospitalization)
  Sender: FDA-Public Use
  Company Number: 2009AL004422

PATIENT
  Age: 70 Year
  Sex: Male

DRUGS (9)
  1. DIGOXIN [Suspect]
     Dosage: PO
     Route: 048
  2. PEPCID [Concomitant]
  3. DILANTIN [Concomitant]
  4. REGLAN [Concomitant]
  5. ASPIRIN [Concomitant]
  6. ISORDIL [Concomitant]
  7. DOPAMINE HCL [Concomitant]
  8. VANCOMYCIN [Concomitant]
  9. LASIX [Concomitant]

REACTIONS (10)
  - ACUTE RESPIRATORY FAILURE [None]
  - ASTHENIA [None]
  - ATRIAL FIBRILLATION [None]
  - CEREBROVASCULAR ACCIDENT [None]
  - CHEST PAIN [None]
  - CONVULSION [None]
  - CORONARY ARTERY DISEASE [None]
  - PERIPHERAL VASCULAR DISORDER [None]
  - PNEUMONIA [None]
  - POST PROCEDURAL COMPLICATION [None]
